FAERS Safety Report 10039468 (Version 1)
Quarter: 2014Q1

REPORT INFORMATION
  Report Type: Spontaneous
  Country: US (occurrence: US)
  Receive Date: 20140326
  Receipt Date: 20140326
  Transmission Date: 20141002
  Serious: Yes (Other)
  Sender: FDA-Public Use
  Company Number: US-JNJFOC-20140310600

PATIENT
  Age: 69 Year
  Sex: Female
  Weight: 90.72 kg

DRUGS (2)
  1. XARELTO [Suspect]
     Indication: THROMBOSIS
     Route: 048
     Dates: start: 201312, end: 20140312
  2. XARELTO [Suspect]
     Indication: PULMONARY THROMBOSIS
     Route: 048
     Dates: start: 201312, end: 20140312

REACTIONS (10)
  - Chest discomfort [Not Recovered/Not Resolved]
  - Paraesthesia [Not Recovered/Not Resolved]
  - Nightmare [Recovered/Resolved]
  - Self-medication [Unknown]
  - Insomnia [Recovered/Resolved]
  - Anxiety [Recovered/Resolved]
  - Muscle spasms [Recovered/Resolved]
  - Malaise [Recovered/Resolved]
  - Burning sensation [Not Recovered/Not Resolved]
  - Incorrect dose administered [Unknown]
